FAERS Safety Report 4600061-0 (Version None)
Quarter: 2005Q1

REPORT INFORMATION
  Report Type: 
  Country: None (occurrence: None)
  Receive Date: 20050307
  Receipt Date: 20041118
  Transmission Date: 20050727
  Serious: Yes (Hospitalization)
  Sender: FDA-Public Use
  Company Number: US-BRISTOL-MYERS SQUIBB COMPANY-12769964

PATIENT
  Age: 46 Year
  Sex: Male

DRUGS (2)
  1. SINEMET [Suspect]
     Indication: RESTLESS LEGS SYNDROME
     Dosage: NUMBER OF DOSAGES:  8 TO 10 DAILY.  DURATION OF THERAPY:  ^FOR A WHILE^
     Route: 048
     Dates: start: 19940101, end: 20040101
  2. ALCOHOL [Concomitant]

REACTIONS (3)
  - BLOOD DISORDER [None]
  - DIARRHOEA [None]
  - GASTROINTESTINAL HAEMORRHAGE [None]
